FAERS Safety Report 6503895-0 (Version None)
Quarter: 2009Q4

REPORT INFORMATION
  Report Type: 
  Country: None (occurrence: None)
  Receive Date: 20091217
  Receipt Date: 20091208
  Transmission Date: 20100525
  Serious: Yes (Other)
  Sender: FDA-Public Use
  Company Number: US-JNJCH-2009032172

PATIENT
  Age: 84 Year
  Sex: Female
  Weight: 54.4 kg

DRUGS (2)
  1. NEOSPORIN LIP HEALTH DAILY HYDRATION THERAPY [Suspect]
     Indication: DRUG USE FOR UNKNOWN INDICATION
     Dosage: TEXT:^DAB^ ONCE
     Route: 061
     Dates: start: 20091207, end: 20091208
  2. DRUG, UNSPECIFIED [Concomitant]
     Indication: CARDIAC DISORDER
     Dosage: TEXT:UNSPECIFIED
     Route: 065

REACTIONS (3)
  - APPLICATION SITE PAIN [None]
  - LIP SWELLING [None]
  - SPEECH DISORDER [None]
